FAERS Safety Report 5885845-3 (Version None)
Quarter: 2008Q3

REPORT INFORMATION
  Report Type: 
  Country: None (occurrence: None)
  Receive Date: 20080917
  Receipt Date: 20080909
  Transmission Date: 20090109
  Serious: Yes (Death, Hospitalization)
  Sender: FDA-Public Use
  Company Number: FR-BRISTOL-MYERS SQUIBB COMPANY-14323679

PATIENT
  Age: 33 Year
  Sex: Male

DRUGS (3)
  1. HOLOXAN [Suspect]
     Indication: GERM CELL CANCER
     Dosage: 2340MG TOTAL DAILY DOSE FROM 04AUG08 (DAY1) TO 08AUG08 (DAY5).
     Route: 042
     Dates: start: 20080808, end: 20080808
  2. CISPLATYL [Suspect]
     Indication: GERM CELL CANCER
     Dosage: 39MG TOTAL DAILY DOSE FROM 04AUG08 (DAY1) TO 08AUG08 (DAY5).
     Route: 042
     Dates: start: 20080808, end: 20080808
  3. GEMZAR [Suspect]
     Indication: GERM CELL CANCER
     Dosage: 1950MG TOTAL DAILY DOSE ADMINISTERED FROM 04AUG08 (DAY1) TO 08AUG08 (DAY5).
     Route: 042
     Dates: start: 20080808, end: 20080808

REACTIONS (6)
  - DEHYDRATION [None]
  - FEBRILE BONE MARROW APLASIA [None]
  - PNEUMONIA ASPIRATION [None]
  - RENAL IMPAIRMENT [None]
  - SEPTIC SHOCK [None]
  - VOMITING [None]
